FAERS Safety Report 8575652-5 (Version None)
Quarter: 2012Q3

REPORT INFORMATION
  Report Type: 
  Country: None (occurrence: None)
  Receive Date: 20120807
  Receipt Date: 20120802
  Transmission Date: 20120928
  Serious: Yes (Other)
  Sender: FDA-Public Use
  Company Number: PHHY2012BR046501

PATIENT
  Age: 71 Year
  Sex: Female

DRUGS (6)
  1. VITAMIN D [Concomitant]
     Indication: TRAUMATIC FRACTURE
     Dates: start: 20110401, end: 20120401
  2. ALN [Concomitant]
  3. GLUCOCORTICOIDS [Concomitant]
  4. ZOLEDRONOC ACID [Suspect]
     Indication: TRAUMATIC FRACTURE
     Dosage: 5 MG YEARLY IV
     Route: 042
     Dates: start: 20110401, end: 20120401
  5. CALCIUM [Concomitant]
     Indication: TRAUMATIC FRACTURE
     Dates: start: 20110401, end: 20120401
  6. ACETAMINOPHEN [Concomitant]

REACTIONS (4)
  - CREATININE RENAL CLEARANCE ABNORMAL [None]
  - FEMUR FRACTURE [None]
  - BONE DENSITY ABNORMAL [None]
  - VITAMIN D DECREASED [None]
